FAERS Safety Report 21134358 (Version 2)
Quarter: 2022Q4

REPORT INFORMATION
  Report Type: Report from Study
  Country: CA (occurrence: CA)
  Receive Date: 20220726
  Receipt Date: 20221007
  Transmission Date: 20230113
  Serious: Yes (Death, Hospitalization, Other)
  Sender: FDA-Public Use
  Company Number: CA-GILEAD-2022-0588660

PATIENT
  Sex: Female

DRUGS (2)
  1. SACITUZUMAB GOVITECAN [Suspect]
     Active Substance: SACITUZUMAB GOVITECAN
     Indication: Triple negative breast cancer
     Dosage: 994 MG C1D1 AND C1D8
     Route: 042
     Dates: start: 20220630, end: 20220707
  2. PACLITAXEL [Concomitant]
     Active Substance: PACLITAXEL

REACTIONS (9)
  - Sepsis [Fatal]
  - Abdominal pain [Fatal]
  - Hypotension [Fatal]
  - Septic shock [Fatal]
  - Gastrointestinal inflammation [Fatal]
  - Neuropathy peripheral [Unknown]
  - Peripheral swelling [Unknown]
  - Circumstance or information capable of leading to medication error [Unknown]
  - Inappropriate schedule of product administration [Unknown]

NARRATIVE: CASE EVENT DATE: 20220101
